FAERS Safety Report 13622271 (Version 1)
Quarter: 2017Q2

REPORT INFORMATION
  Report Type: Spontaneous
  Country: US (occurrence: US)
  Receive Date: 20170607
  Receipt Date: 20170607
  Transmission Date: 20170830
  Serious: No
  Sender: FDA-Public Use
  Company Number: US-ROCHE-1855276

PATIENT
  Sex: Male

DRUGS (3)
  1. CELLCEPT [Suspect]
     Active Substance: MYCOPHENOLATE MOFETIL\MYCOPHENOLATE MOFETIL HYDROCHLORIDE
     Indication: LIVER TRANSPLANT
     Route: 048
     Dates: start: 201607
  2. CELLCEPT [Suspect]
     Active Substance: MYCOPHENOLATE MOFETIL\MYCOPHENOLATE MOFETIL HYDROCHLORIDE
     Route: 048
  3. PSYLLIUM [Concomitant]
     Active Substance: PLANTAGO SEED

REACTIONS (8)
  - Immunodeficiency [Unknown]
  - Pruritus [Unknown]
  - Choking [Unknown]
  - Fatigue [Unknown]
  - Ill-defined disorder [Unknown]
  - Dysphagia [Unknown]
  - Feeling abnormal [Unknown]
  - Osteoporosis [Unknown]
